FAERS Safety Report 10204569 (Version 2)
Quarter: 2014Q3

REPORT INFORMATION
  Report Type: Spontaneous
  Country: US (occurrence: US)
  Receive Date: 20140529
  Receipt Date: 20140702
  Transmission Date: 20150326
  Serious: Yes (Hospitalization)
  Sender: FDA-Public Use
  Company Number: US-BAYER-2014-075127

PATIENT
  Age: 30 Year
  Sex: Female

DRUGS (1)
  1. MIRENA [Suspect]
     Active Substance: LEVONORGESTREL
     Indication: CONTRACEPTION
     Dosage: 20 MCG/24HR, CONT
     Route: 015
     Dates: start: 20090701, end: 20100730

REACTIONS (8)
  - Injury [None]
  - Headache [None]
  - Vaginal haemorrhage [None]
  - Medical device pain [None]
  - Menometrorrhagia [None]
  - Pyrexia [None]
  - Emotional distress [None]
  - Uterine perforation [None]

NARRATIVE: CASE EVENT DATE: 20090902
